FAERS Safety Report 6885220-9 (Version None)
Quarter: 2010Q3

REPORT INFORMATION
  Report Type: 
  Country: None (occurrence: None)
  Receive Date: 20100729
  Receipt Date: 20100729
  Transmission Date: 20110219
  Serious: Yes (Other)
  Sender: FDA-Public Use
  Company Number: None

PATIENT
  Age: 46 Year
  Sex: Female
  Weight: 90.7194 kg

DRUGS (5)
  1. ZEMURON [Suspect]
     Indication: ENDOTRACHEAL INTUBATION
     Dates: start: 20100518, end: 20100518
  2. ZEMURON [Suspect]
     Indication: PARALYSIS
     Dates: start: 20100518, end: 20100518
  3. ZEMURON [Suspect]
  4. DEMEROL [Concomitant]
  5. VERSED [Concomitant]

REACTIONS (2)
  - ERYTHEMA [None]
  - INFUSION SITE ERYTHEMA [None]
